FAERS Safety Report 5736702-4 (Version None)
Quarter: 2008Q2

REPORT INFORMATION
  Report Type: 
  Country: None (occurrence: None)
  Receive Date: 20080513
  Receipt Date: 20080501
  Transmission Date: 20081010
  Serious: Yes (Other)
  Sender: FDA-Public Use
  Company Number: US-PFIZER INC-2008038984

PATIENT
  Sex: Female

DRUGS (4)
  1. NEURONTIN [Suspect]
     Indication: EPILEPSY
     Dosage: DAILY DOSE:900MG
  2. TEGRETOL [Suspect]
     Indication: EPILEPSY
     Dosage: DAILY DOSE:800MG
  3. KLONOPIN [Suspect]
     Indication: EPILEPSY
     Dosage: DAILY DOSE:2MG
  4. TOPAMAX [Suspect]
     Indication: EPILEPSY
     Dosage: DAILY DOSE:200MG

REACTIONS (2)
  - CLEFT LIP AND PALATE [None]
  - DRUG EXPOSURE DURING PREGNANCY [None]
